FAERS Safety Report 4726891-2 (Version None)
Quarter: 2005Q3

REPORT INFORMATION
  Report Type: 
  Country: None (occurrence: None)
  Receive Date: 20050725
  Receipt Date: 20050725
  Transmission Date: 20060218
  Serious: Yes (Hospitalization)
  Sender: FDA-Public Use
  Company Number: None

PATIENT
  Age: 73 Year
  Sex: Male
  Weight: 68.9467 kg

DRUGS (14)
  1. VALPROIC ACID [Suspect]
     Indication: CONVULSION
     Dosage: 350MG BID ORAL
     Route: 048
     Dates: start: 20030515, end: 20050506
  2. HOME HOSPICE KIT [Concomitant]
  3. KEPPRA [Concomitant]
  4. VALPROIC ACID [Concomitant]
  5. SEROQUEL [Concomitant]
  6. FLUOXETINE [Concomitant]
  7. OMEPRAZOLE [Concomitant]
  8. NEURONTIN [Concomitant]
  9. SINEMET [Concomitant]
  10. ASPIRIN [Concomitant]
  11. ALLOPURINOL [Concomitant]
  12. OXYCODONE [Concomitant]
  13. JEVITY LIQUID [Concomitant]
  14. WATER [Concomitant]

REACTIONS (3)
  - FAILURE TO THRIVE [None]
  - LABORATORY TEST ABNORMAL [None]
  - PANCYTOPENIA [None]
